FAERS Safety Report 23223688 (Version 3)
Quarter: 2023Q4

REPORT INFORMATION
  Report Type: Spontaneous
  Country: CN (occurrence: CN)
  Receive Date: 20231124
  Receipt Date: 20231206
  Transmission Date: 20240109
  Serious: Yes (Other)
  Sender: FDA-Public Use
  Company Number: CN-UCBSA-2023054211

PATIENT
  Age: 38 Year
  Sex: Male
  Weight: 69 kg

DRUGS (3)
  1. KEPPRA [Suspect]
     Active Substance: LEVETIRACETAM
     Indication: Epilepsy
     Dosage: 0.25G IN THE MORNING AND 0.25G IN THE EVENING (2X/DAY (BID))
     Route: 048
     Dates: start: 202003
  2. KEPPRA [Suspect]
     Active Substance: LEVETIRACETAM
     Dosage: 0.5 GRAM, 2X/DAY (BID) (IN THE MORNING AND EVENING)
     Route: 048
  3. OXCARBAZEPINE [Concomitant]
     Active Substance: OXCARBAZEPINE
     Indication: Product used for unknown indication
     Dosage: 0.3 GRAM, 2X/DAY (BID) (IN THE MORNING AND EVENING)

REACTIONS (3)
  - Epilepsy [Recovered/Resolved]
  - Therapeutic product ineffective [Unknown]
  - Off label use [Unknown]

NARRATIVE: CASE EVENT DATE: 20200301
